FAERS Safety Report 14027718 (Version 7)
Quarter: 2019Q3

REPORT INFORMATION
  Report Type: Report from Study
  Country: US (occurrence: US)
  Receive Date: 20170929
  Receipt Date: 20190920
  Transmission Date: 20191004
  Serious: Yes (Other)
  Sender: FDA-Public Use
  Company Number: PHHY2017US138648

PATIENT
  Age: 67 Year
  Sex: Female

DRUGS (2)
  1. GILENYA [Suspect]
     Active Substance: FINGOLIMOD HYDROCHLORIDE
     Indication: MULTIPLE SCLEROSIS
     Dosage: UNK, QD
     Route: 048
  2. ASPIRINE [Concomitant]
     Active Substance: ASPIRIN
     Indication: PROPHYLAXIS
     Dosage: UNK
     Route: 065
     Dates: start: 20181121

REACTIONS (25)
  - Urinary retention [Unknown]
  - Paraesthesia [Recovered/Resolved]
  - Limb discomfort [Recovered/Resolved]
  - Skin odour abnormal [Recovered/Resolved]
  - White blood cell count decreased [Recovered/Resolved]
  - Arthralgia [Unknown]
  - Ageusia [Recovered/Resolved]
  - Tremor [Recovered/Resolved]
  - Hypokinesia [Recovered/Resolved]
  - Wound [Unknown]
  - Postoperative wound infection [Unknown]
  - Fatigue [Recovered/Resolved]
  - Balance disorder [Unknown]
  - Hemiparesis [Unknown]
  - Concomitant disease aggravated [Recovered/Resolved]
  - Asthenia [Unknown]
  - Weight increased [Recovered/Resolved]
  - Lymphocyte count decreased [Unknown]
  - Groin pain [Unknown]
  - Hypertension [Recovered/Resolved]
  - Muscular weakness [Recovered/Resolved]
  - Postural tremor [Unknown]
  - Ear pain [Recovered/Resolved]
  - Dry mouth [Recovered/Resolved]
  - Headache [Recovered/Resolved]

NARRATIVE: CASE EVENT DATE: 20170609
